FAERS Safety Report 5569988-X (Version None)
Quarter: 2007Q4

REPORT INFORMATION
  Report Type: 
  Country: None (occurrence: None)
  Receive Date: 20071217
  Receipt Date: 20071206
  Transmission Date: 20080405
  Serious: Yes (Hospitalization)
  Sender: FDA-Public Use
  Company Number: GXKR2007CH10512

PATIENT
  Age: 75 Year
  Sex: Male

DRUGS (4)
  1. ACETAMINOPHEN [Suspect]
     Dosage: INTRAVENOUS, ORAL
     Route: 042
  2. ETHANOL (ETHANOL) [Suspect]
  3. RAMIPRIL [Concomitant]
  4. CHYDROCHLOROTHIAZIDE (HYDROCHLOROTHIAZIDE) [Concomitant]

REACTIONS (8)
  - ABDOMINAL PAIN UPPER [None]
  - ACUTE HEPATIC FAILURE [None]
  - AGITATION [None]
  - ALCOHOL INTERACTION [None]
  - ANOREXIA [None]
  - COAGULOPATHY [None]
  - DRUG TOXICITY [None]
  - NAUSEA [None]
